FAERS Safety Report 9024548 (Version 1)
Quarter: 2013Q1

REPORT INFORMATION
  Report Type: Spontaneous
  Country: BR (occurrence: BR)
  Receive Date: 20130121
  Receipt Date: 20130121
  Transmission Date: 20140127
  Serious: Yes (Other)
  Sender: FDA-Public Use
  Company Number: BR-AMGEN-BRASP2013003367

PATIENT
  Age: 67 Year
  Sex: Female
  Weight: 63 kg

DRUGS (4)
  1. ENBREL [Suspect]
     Indication: RHEUMATOID ARTHRITIS
     Dosage: UNK,UNK,UNK
     Route: 058
     Dates: start: 201007, end: 201202
  2. ENBREL [Suspect]
     Dosage: 50 MG, ONCE WEEKLY
     Route: 058
     Dates: start: 201203, end: 201208
  3. CORTISONE [Concomitant]
     Dosage: 6 MG, ONCE DAILY
     Route: 048
  4. TIBOLONE [Concomitant]
     Dosage: 1.05 MG, ONCE DAILY
     Route: 048

REACTIONS (3)
  - Carpal tunnel syndrome [Unknown]
  - Drug ineffective [Unknown]
  - Injection site pain [Unknown]
